FAERS Safety Report 19707869 (Version 1)
Quarter: 2021Q3

REPORT INFORMATION
  Report Type: Spontaneous
  Country: CN (occurrence: CN)
  Receive Date: 20210816
  Receipt Date: 20210816
  Transmission Date: 20211014
  Serious: Yes (Hospitalization, Other)
  Sender: FDA-Public Use
  Company Number: CN-ROCHE-2887518

PATIENT
  Age: 84 Year
  Sex: Male

DRUGS (4)
  1. BEVACIZUMAB. [Suspect]
     Active Substance: BEVACIZUMAB
     Indication: ADENOCARCINOMA OF COLON
  2. BEVACIZUMAB. [Suspect]
     Active Substance: BEVACIZUMAB
     Indication: PROSTATE CANCER
     Route: 041
     Dates: start: 20210301, end: 20210301
  3. IRINOTECAN HYDROCHLORIDE. [Suspect]
     Active Substance: IRINOTECAN HYDROCHLORIDE
     Indication: ADENOCARCINOMA OF COLON
     Route: 041
     Dates: start: 20210302, end: 20210302
  4. SODIUM DEOXYRIBONUCLEOTIDE [Concomitant]
     Indication: ADJUVANT THERAPY
     Route: 041
     Dates: start: 20210222, end: 20210323

REACTIONS (5)
  - Diarrhoea [Recovering/Resolving]
  - Asthenia [Unknown]
  - Vomiting [Recovering/Resolving]
  - Myelosuppression [Unknown]
  - Nausea [Recovering/Resolving]

NARRATIVE: CASE EVENT DATE: 20210305
